FAERS Safety Report 5019006-7 (Version None)
Quarter: 2006Q2

REPORT INFORMATION
  Report Type: 
  Country: None (occurrence: None)
  Receive Date: 20060606
  Receipt Date: 20060523
  Transmission Date: 20061013
  Serious: Yes (Hospitalization)
  Sender: FDA-Public Use
  Company Number: JP-JPN-A200601676

PATIENT
  Age: 28 Year
  Sex: Female

DRUGS (9)
  1. PAXIL [Suspect]
     Indication: DEPRESSION
     Dosage: 20MG PER DAY
     Route: 048
     Dates: start: 20060418, end: 20060519
  2. FLUMEZIN [Concomitant]
     Indication: SCHIZOPHRENIA
     Dosage: 2U PER DAY
     Route: 048
  3. ALPRAZOLAM [Concomitant]
     Indication: INSOMNIA
     Dosage: 1U PER DAY
     Route: 048
  4. PURSENNID [Concomitant]
     Indication: CONSTIPATION
     Dosage: 2U PER DAY
     Route: 048
  5. VOLTAREN [Concomitant]
     Dosage: 2U PER DAY
     Route: 048
  6. CHINESE HERBAL MEDICINE [Concomitant]
     Indication: URINARY RETENTION
     Route: 048
     Dates: end: 20060519
  7. TRANEXAMIC ACID [Concomitant]
     Dosage: 3U PER DAY
     Route: 048
  8. EBASTEL [Concomitant]
     Indication: SEASONAL ALLERGY
     Route: 048
     Dates: end: 20060519
  9. CARBAZOCHROME [Concomitant]
     Dosage: 3U PER DAY
     Route: 048

REACTIONS (13)
  - BLOOD PRESSURE INCREASED [None]
  - BOWEL SOUNDS ABNORMAL [None]
  - CLONUS [None]
  - HEART RATE INCREASED [None]
  - HYPERHIDROSIS [None]
  - HYPERREFLEXIA [None]
  - MUSCULOSKELETAL STIFFNESS [None]
  - MYDRIASIS [None]
  - OVERDOSE [None]
  - PALPITATIONS [None]
  - SEROTONIN SYNDROME [None]
  - TREMOR [None]
  - VISUAL ACUITY REDUCED [None]
